FAERS Safety Report 5853529-3 (Version None)
Quarter: 2008Q3

REPORT INFORMATION
  Report Type: 
  Country: None (occurrence: None)
  Receive Date: 20080822
  Receipt Date: 20080613
  Transmission Date: 20090109
  Serious: No
  Sender: FDA-Public Use
  Company Number: US-BAYER-200812762BCC

PATIENT
  Age: 23 Year
  Sex: Female

DRUGS (2)
  1. ALEVE [Suspect]
     Indication: SINUSITIS
     Dosage: AS USED: 220 MG  UNIT DOSE: 220 MG
     Route: 048
     Dates: start: 20080613
  2. ZYRTEC [Concomitant]

REACTIONS (2)
  - DYSPNOEA [None]
  - SINUSITIS [None]
